FAERS Safety Report 9277190 (Version 3)
Quarter: 2013Q2

REPORT INFORMATION
  Report Type: Spontaneous
  Country: DE (occurrence: DE)
  Receive Date: 20130508
  Receipt Date: 20130523
  Transmission Date: 20140414
  Serious: Yes (Other)
  Sender: FDA-Public Use
  Company Number: DE-009507513-1305DEU001977

PATIENT
  Age: 72 Year
  Sex: Male

DRUGS (3)
  1. INTRONA [Suspect]
     Indication: MALIGNANT MELANOMA
     Dosage: 3 X 3 MIO IU/WEEK
     Route: 058
     Dates: start: 20120730, end: 2013
  2. XANEF 5 MG [Concomitant]
     Indication: HYPERTENSION
     Dosage: 1-0-0
     Route: 048
  3. METOPROLOL [Concomitant]
     Indication: HYPERTENSION
     Dosage: 0-0-1

REACTIONS (1)
  - Diffuse large B-cell lymphoma [Unknown]
